FAERS Safety Report 10142209 (Version 2)
Quarter: 2014Q2

REPORT INFORMATION
  Report Type: Spontaneous
  Country: US (occurrence: US)
  Receive Date: 20140430
  Receipt Date: 20140515
  Transmission Date: 20141212
  Serious: Yes (Hospitalization, Other)
  Sender: FDA-Public Use
  Company Number: US-009507513-1404USA014399

PATIENT
  Age: 48 Year
  Sex: Male

DRUGS (17)
  1. ISENTRESS [Suspect]
     Indication: HIV INFECTION
     Dosage: 400 MG, BID
     Route: 048
     Dates: start: 201202, end: 2014
  2. LEXIVA [Concomitant]
  3. NORVIR [Concomitant]
  4. ADVAIR [Concomitant]
  5. LOVAZA [Concomitant]
  6. MIRTAZAPINE [Concomitant]
  7. PRAVASTATIN SODIUM [Concomitant]
  8. PROPRANOLOL HYDROCHLORIDE [Concomitant]
  9. RISPERIDONE [Concomitant]
  10. VENLAFAXINE HYDROCHLORIDE [Concomitant]
  11. VIAGRA [Concomitant]
  12. COUMADIN [Concomitant]
  13. LYRICA [Concomitant]
  14. ALPRAZOLAM [Concomitant]
  15. WELLBUTRIN [Concomitant]
  16. LODIPIN [Concomitant]
  17. TESTOSTERONE [Concomitant]

REACTIONS (8)
  - Adverse event [Recovering/Resolving]
  - Renal failure acute [Recovering/Resolving]
  - Electrocardiogram abnormal [Recovering/Resolving]
  - Blood creatine phosphokinase increased [Recovering/Resolving]
  - Blood creatine abnormal [Recovering/Resolving]
  - Platelet count abnormal [Recovering/Resolving]
  - Muscle atrophy [Recovering/Resolving]
  - Streptococcal bacteraemia [Recovering/Resolving]
